FAERS Safety Report 9378646 (Version 2)
Quarter: 2013Q4

REPORT INFORMATION
  Report Type: Spontaneous
  Country: ES (occurrence: None)
  Receive Date: 20130626
  Receipt Date: 20131104
  Transmission Date: 20140711
  Serious: Yes (Other)
  Sender: FDA-Public Use
  Company Number: SYM-2013-05028

PATIENT
  Age: 59 Year
  Sex: Female

DRUGS (2)
  1. ELONTRIL [Suspect]
     Indication: PRODUCT USED FOR UNKNOWN INDICATION
     Route: 048
     Dates: start: 200906, end: 201307
  2. CITALOPRAM [Concomitant]

REACTIONS (2)
  - Tachycardia [None]
  - Psoriasis [None]
